FAERS Safety Report 5982908-9 (Version None)
Quarter: 2008Q4

REPORT INFORMATION
  Report Type: 
  Country: None (occurrence: None)
  Receive Date: 20081125
  Receipt Date: 20070627
  Transmission Date: 20090506
  Serious: Yes (Death, Other)
  Sender: FDA-Public Use
  Company Number: 2007MP000499

PATIENT

DRUGS (2)
  1. GLIADEL [Suspect]
     Indication: GLIOBLASTOMA MULTIFORME
     Dosage: X1;ICER
  2. TEMOZOLOMIDE [Concomitant]

REACTIONS (6)
  - BRAIN OEDEMA [None]
  - DISEASE PROGRESSION [None]
  - ENCEPHALITIS [None]
  - IMPLANT SITE NECROSIS [None]
  - POSTOPERATIVE WOUND INFECTION [None]
  - PSYCHOTIC DISORDER [None]
